FAERS Safety Report 7197830-2 (Version None)
Quarter: 2010Q4

REPORT INFORMATION
  Report Type: 
  Country: None (occurrence: None)
  Receive Date: 20101207
  Receipt Date: 20101124
  Transmission Date: 20110411
  Serious: Yes (Other)
  Sender: FDA-Public Use
  Company Number: 2010SP061935

PATIENT
  Age: 20 Year
  Sex: Female

DRUGS (1)
  1. IMPLANON [Suspect]
     Indication: CONTRACEPTION
     Dates: start: 20070226

REACTIONS (6)
  - ALOPECIA [None]
  - EMOTIONAL DISORDER [None]
  - FEELING ABNORMAL [None]
  - LOCAL SWELLING [None]
  - SWELLING FACE [None]
  - WEIGHT INCREASED [None]
